FAERS Safety Report 13274314 (Version 1)
Quarter: 2017Q1

REPORT INFORMATION
  Report Type: Report from Study
  Country: US (occurrence: US)
  Receive Date: 20170227
  Receipt Date: 20170227
  Transmission Date: 20170428
  Serious: Yes (Life-Threatening, Other)
  Sender: FDA-Public Use
  Company Number: US-BRISTOL-MYERS SQUIBB COMPANY-BMS-2017-014837

PATIENT

DRUGS (4)
  1. DASATINIB [Suspect]
     Active Substance: DASATINIB
     Indication: ACUTE MYELOID LEUKAEMIA
     Route: 065
  2. DECITABINE. [Suspect]
     Active Substance: DECITABINE
     Indication: ACUTE MYELOID LEUKAEMIA
     Dosage: 10 MG/M2, QD
     Route: 042
  3. DECITABINE. [Suspect]
     Active Substance: DECITABINE
     Indication: CHRONIC MYELOID LEUKAEMIA
     Dosage: 20 MG/M2, QD
     Route: 042
  4. DASATINIB [Suspect]
     Active Substance: DASATINIB
     Indication: CHRONIC MYELOID LEUKAEMIA
     Dosage: 100 MG, QD
     Route: 048

REACTIONS (2)
  - Myocardial infarction [Unknown]
  - Cardiac arrest [Unknown]
